FAERS Safety Report 13081083 (Version 1)
Quarter: 2017Q1

REPORT INFORMATION
  Report Type: Report from Study
  Country: US (occurrence: US)
  Receive Date: 20170103
  Receipt Date: 20170103
  Transmission Date: 20170428
  Serious: Yes (Hospitalization)
  Sender: FDA-Public Use
  Company Number: US-BAYER-2016-059620

PATIENT
  Age: 73 Year
  Sex: Female

DRUGS (2)
  1. NEXAVAR [Suspect]
     Active Substance: SORAFENIB
     Indication: HEPATIC CANCER
     Dosage: 400 MG, BID
     Route: 048
     Dates: start: 20131003
  2. NEXAVAR [Suspect]
     Active Substance: SORAFENIB
     Indication: HEPATIC CANCER
     Dosage: 400 MG, BID
     Route: 048
     Dates: start: 20151228, end: 20160603

REACTIONS (5)
  - Hospitalisation [Recovered/Resolved]
  - Vascular graft [Unknown]
  - Leg amputation [None]
  - Impaired healing [Recovered/Resolved]
  - Peripheral artery bypass [Unknown]

NARRATIVE: CASE EVENT DATE: 20160606
